FAERS Safety Report 9812647 (Version 4)
Quarter: 2016Q3

REPORT INFORMATION
  Report Type: Report from Study
  Country: US (occurrence: US)
  Receive Date: 20140113
  Receipt Date: 20160810
  Transmission Date: 20161109
  Serious: Yes (Life-Threatening, Other)
  Sender: FDA-Public Use
  Company Number: US-ROCHE-772109

PATIENT
  Age: 79 Year
  Sex: Male
  Weight: 88.1 kg

DRUGS (8)
  1. VISMODEGIB [Suspect]
     Active Substance: VISMODEGIB
     Route: 048
  2. VISMODEGIB [Suspect]
     Active Substance: VISMODEGIB
     Route: 048
  3. CISPLATIN. [Suspect]
     Active Substance: CISPLATIN
     Indication: SMALL CELL LUNG CANCER EXTENSIVE STAGE
     Dosage: LAST DOSE PRIOR TO ACNEIFORM RASH: 28/NOV/2010
     Route: 042
     Dates: start: 20100927
  4. VISMODEGIB [Suspect]
     Active Substance: VISMODEGIB
     Indication: SMALL CELL LUNG CANCER EXTENSIVE STAGE
     Route: 048
  5. VISMODEGIB [Suspect]
     Active Substance: VISMODEGIB
     Route: 048
     Dates: start: 20110117, end: 20110206
  6. ETOPOSIDE. [Suspect]
     Active Substance: ETOPOSIDE
     Indication: SMALL CELL LUNG CANCER EXTENSIVE STAGE
     Dosage: LAST DOSE PRIOR TO ACNEIFORM RASH: 28/NOV/2010
     Route: 042
     Dates: start: 20100927
  7. VISMODEGIB [Suspect]
     Active Substance: VISMODEGIB
     Route: 048
  8. VISMODEGIB [Suspect]
     Active Substance: VISMODEGIB
     Route: 048

REACTIONS (3)
  - Dermatitis acneiform [Unknown]
  - White blood cell count decreased [Unknown]
  - Neutrophil count decreased [Unknown]

NARRATIVE: CASE EVENT DATE: 20101011
